FAERS Safety Report 8385791-X (Version None)
Quarter: 2012Q2

REPORT INFORMATION
  Report Type: 
  Country: None (occurrence: None)
  Receive Date: 20120525
  Receipt Date: 20120522
  Transmission Date: 20120825
  Serious: No
  Sender: FDA-Public Use
  Company Number: US-PFIZER INC-2012124808

PATIENT
  Sex: Female

DRUGS (3)
  1. XALKORI [Suspect]
     Indication: LUNG NEOPLASM MALIGNANT
     Dosage: 200 MG, 2X/DAY
     Dates: start: 20120418
  2. XALKORI [Suspect]
     Indication: BRONCHIAL CARCINOMA
  3. XALKORI [Suspect]
     Indication: TRACHEAL CANCER

REACTIONS (1)
  - NAUSEA [None]
